FAERS Safety Report 7217252-5 (Version None)
Quarter: 2011Q1

REPORT INFORMATION
  Report Type: 
  Country: None (occurrence: None)
  Receive Date: 20110110
  Receipt Date: 20110105
  Transmission Date: 20110831
  Serious: Yes (Hospitalization, Disabling)
  Sender: FDA-Public Use
  Company Number: DE-US-EMD SERONO, INC.-7034489

PATIENT
  Age: 32 Year
  Sex: Female

DRUGS (2)
  1. TERAZID [Concomitant]
     Indication: BLADDER DISORDER
  2. REBIF [Suspect]
     Indication: MULTIPLE SCLEROSIS
     Route: 058
     Dates: start: 20040901, end: 20100801

REACTIONS (1)
  - ERYTHEMA NODOSUM [None]
